FAERS Safety Report 6582683-3 (Version None)
Quarter: 2010Q1

REPORT INFORMATION
  Report Type: 
  Country: None (occurrence: None)
  Receive Date: 20100216
  Receipt Date: 20100208
  Transmission Date: 20100710
  Serious: Yes (Other)
  Sender: FDA-Public Use
  Company Number: CH-BRISTOL-MYERS SQUIBB COMPANY-14968440

PATIENT
  Age: 55 Year
  Sex: Female

DRUGS (3)
  1. PRAVASTATIN SODIUM [Suspect]
     Indication: PROPHYLAXIS
  2. LITHIUM CARBONATE [Interacting]
     Indication: DEPRESSION
     Dosage: INCREASED TO 900MG DAILY
  3. OLANZAPINE [Interacting]

REACTIONS (2)
  - DRUG INTERACTION [None]
  - RASH PRURITIC [None]
